FAERS Safety Report 9681086 (Version 1)
Quarter: 2013Q4

REPORT INFORMATION
  Report Type: Spontaneous
  Country: US (occurrence: None)
  Receive Date: 20131108
  Receipt Date: 20131108
  Transmission Date: 20140711
  Serious: No
  Sender: FDA-Public Use
  Company Number: None

PATIENT
  Age: 65 Year
  Sex: Female
  Weight: 59.42 kg

DRUGS (1)
  1. VANCOMYCIN HCL [Suspect]
     Indication: CLOSTRIDIUM TEST POSITIVE
     Route: 048
     Dates: start: 20131026, end: 20131031

REACTIONS (11)
  - Dyspnoea [None]
  - Blood urine present [None]
  - Feeling jittery [None]
  - Pollakiuria [None]
  - Pain in extremity [None]
  - Pain in extremity [None]
  - Dry mouth [None]
  - Chills [None]
  - Piloerection [None]
  - Dysuria [None]
  - Product substitution issue [None]
